FAERS Safety Report 23405652 (Version 1)
Quarter: 2024Q1

REPORT INFORMATION
  Report Type: Spontaneous
  Country: MX (occurrence: MX)
  Receive Date: 20240116
  Receipt Date: 20240116
  Transmission Date: 20240410
  Serious: Yes (Other)
  Sender: FDA-Public Use
  Company Number: MX-BAYER-2024A005254

PATIENT
  Age: 45 Year
  Sex: Male

DRUGS (1)
  1. LAROTRECTINIB [Suspect]
     Active Substance: LAROTRECTINIB
     Indication: Glioblastoma multiforme
     Dosage: 100 MG, BID
     Route: 048
     Dates: end: 202401

REACTIONS (1)
  - Glioblastoma multiforme [None]

NARRATIVE: CASE EVENT DATE: 20240101
